FAERS Safety Report 7788078-9 (Version None)
Quarter: 2011Q3

REPORT INFORMATION
  Report Type: 
  Country: None (occurrence: None)
  Receive Date: 20110930
  Receipt Date: 20101026
  Transmission Date: 20111222
  Serious: Yes (Hospitalization, Other)
  Sender: FDA-Public Use
  Company Number: US-BAYER-201025117NA

PATIENT
  Sex: Female
  Weight: 131.52 kg

DRUGS (12)
  1. YAZ [Suspect]
     Dosage: UNK
     Dates: start: 20080101, end: 20090901
  2. FLUOXETINE [Concomitant]
     Dosage: UNK
     Dates: start: 20090101
  3. AMOXICILLIN [Concomitant]
     Dosage: UNK
     Dates: start: 20090101
  4. YAZ [Suspect]
  5. VERAPAMIL [Concomitant]
     Dosage: UNK
     Dates: start: 20090101
  6. SUMATRIPTAN SUCCINATE [Concomitant]
     Dosage: UNK
     Dates: start: 20090101
  7. MAXALT [Concomitant]
     Dosage: UNK
     Dates: start: 20080101
  8. HYDROCODONE BITARTRATE AND ACETAMINOPHEN [Concomitant]
     Dosage: UNK
     Dates: start: 20080101
  9. CEFUROXIME [Concomitant]
     Dosage: UNK
     Dates: start: 20080101
  10. FLUCONAZOLE [Concomitant]
     Dosage: UNK
     Dates: start: 20080101
  11. OFLOXACIN [Concomitant]
     Dosage: UNK
     Dates: start: 20090101
  12. IBUPROFEN [Concomitant]
     Dosage: UNK

REACTIONS (9)
  - ABDOMINAL DISCOMFORT [None]
  - NAUSEA [None]
  - BILIARY COLIC [None]
  - CHOLELITHIASIS [None]
  - CHOLECYSTITIS CHRONIC [None]
  - ABDOMINAL PAIN UPPER [None]
  - ABDOMINAL TENDERNESS [None]
  - FAT INTOLERANCE [None]
  - CHOLESTEROSIS [None]
